FAERS Safety Report 12633440 (Version 2)
Quarter: 2016Q3

REPORT INFORMATION
  Report Type: Spontaneous
  Country: US (occurrence: US)
  Receive Date: 20160808
  Receipt Date: 20160819
  Transmission Date: 20161109
  Serious: No
  Sender: FDA-Public Use
  Company Number: ALCN2016US005473

PATIENT
  Age: 61 Year
  Sex: Female

DRUGS (1)
  1. TRAVATAN Z [Suspect]
     Active Substance: TRAVOPROST
     Indication: GLAUCOMA
     Dosage: 1 GTT, ONCE/SINGLE
     Route: 047
     Dates: start: 20160803, end: 20160803

REACTIONS (1)
  - Eye pain [Recovered/Resolved]

NARRATIVE: CASE EVENT DATE: 20160803
